FAERS Safety Report 16410334 (Version 1)
Quarter: 2019Q3

REPORT INFORMATION
  Report Type: Spontaneous
  Country: US (occurrence: US)
  Receive Date: 20190607
  Receipt Date: 20190607
  Transmission Date: 20191004
  Serious: Yes (Life-Threatening, Hospitalization)
  Sender: FDA-Public Use
  Company Number: None

PATIENT
  Age: 42 Year
  Sex: Female
  Weight: 121 kg

DRUGS (6)
  1. SYNTHROID [Concomitant]
     Active Substance: LEVOTHYROXINE SODIUM
  2. PROTONIX [Concomitant]
     Active Substance: PANTOPRAZOLE SODIUM
  3. ZYRTEC [Concomitant]
     Active Substance: CETIRIZINE HYDROCHLORIDE
  4. NAPROXEN. [Concomitant]
     Active Substance: NAPROXEN
  5. LISINOPRIL. [Concomitant]
     Active Substance: LISINOPRIL
  6. YAZ [Suspect]
     Active Substance: DROSPIRENONE\ETHINYL ESTRADIOL
     Indication: CONTRACEPTION
     Route: 048
     Dates: start: 20190105, end: 20190605

REACTIONS (4)
  - Exposure during pregnancy [None]
  - Dyspnoea [None]
  - Chest pain [None]
  - Tachycardia [None]

NARRATIVE: CASE EVENT DATE: 20190606
